APPROVED DRUG PRODUCT: FORTAZ
Active Ingredient: CEFTAZIDIME
Strength: 500MG/VIAL **Federal Register determination that product was not discontinued or withdrawn for safety or effectiveness reasons**
Dosage Form/Route: INJECTABLE;INJECTION
Application: N050578 | Product #001
Applicant: PAI HOLDINGS LLC DBA PHARMACEUTICAL ASSOCIATES INC
Approved: Jul 19, 1985 | RLD: Yes | RS: No | Type: DISCN